FAERS Safety Report 25059138 (Version 1)
Quarter: 2025Q1

REPORT INFORMATION
  Report Type: Spontaneous
  Country: JP (occurrence: JP)
  Receive Date: 20250310
  Receipt Date: 20250310
  Transmission Date: 20250409
  Serious: Yes (Death, Hospitalization, Other)
  Sender: ALEXION PHARMACEUTICALS
  Company Number: JP-ASTRAZENECA-240055295_013120_P_1

PATIENT
  Age: 75 Year
  Weight: 44 kg

DRUGS (10)
  1. IMFINZI [Suspect]
     Active Substance: DURVALUMAB
     Indication: Hepatocellular carcinoma
  2. IMJUDO [Suspect]
     Active Substance: TREMELIMUMAB\TREMELIMUMAB-ACTL
     Indication: Hepatocellular carcinoma
  3. AMLODIPINE\TELMISARTAN [Concomitant]
     Active Substance: AMLODIPINE\TELMISARTAN
  4. AMLODIPINE\TELMISARTAN [Concomitant]
     Active Substance: AMLODIPINE\TELMISARTAN
  5. AMLODIPINE\TELMISARTAN [Concomitant]
     Active Substance: AMLODIPINE\TELMISARTAN
  6. DAYVIGO [Concomitant]
     Active Substance: LEMBOREXANT
  7. DAYVIGO [Concomitant]
     Active Substance: LEMBOREXANT
  8. DAYVIGO [Concomitant]
     Active Substance: LEMBOREXANT
  9. CILOSTAZOL [Concomitant]
     Active Substance: CILOSTAZOL
  10. CILOSTAZOL [Concomitant]
     Active Substance: CILOSTAZOL

REACTIONS (2)
  - Immune-mediated enterocolitis [Recovered/Resolved]
  - Death [Fatal]
